FAERS Safety Report 15478507 (Version 1)
Quarter: 2018Q4

REPORT INFORMATION
  Report Type: Spontaneous
  Country: FI (occurrence: FI)
  Receive Date: 20181009
  Receipt Date: 20181009
  Transmission Date: 20190205
  Serious: Yes (Disabling, Other)
  Sender: FDA-Public Use
  Company Number: FI-PFIZER INC-2018400957

PATIENT
  Age: 61 Year
  Sex: Male

DRUGS (18)
  1. AZAMUN [Suspect]
     Active Substance: AZATHIOPRINE
     Dosage: 50 MG, QD
     Route: 065
     Dates: start: 20150224
  2. PREDNISOLON [Suspect]
     Active Substance: PREDNISOLONE
     Indication: COLITIS ULCERATIVE
     Dosage: UNK
     Route: 065
  3. INFLIXIMAB [Suspect]
     Active Substance: INFLIXIMAB
     Indication: COLITIS ULCERATIVE
     Dosage: 5 MG/KG, UNK
     Route: 065
     Dates: start: 20171115
  4. AZAMUN [Suspect]
     Active Substance: AZATHIOPRINE
     Indication: COLITIS ULCERATIVE
     Dosage: UNK
     Route: 065
     Dates: start: 20131213
  5. PREDNISOLON [Suspect]
     Active Substance: PREDNISOLONE
     Dosage: UNK
     Route: 065
     Dates: start: 20131213
  6. MERCAPTOPURIN [Concomitant]
     Active Substance: MERCAPTOPURINE
     Dosage: 100 MG, QD
     Dates: start: 20141015
  7. ASACOL [Concomitant]
     Active Substance: MESALAMINE
     Indication: COLITIS ULCERATIVE
     Dosage: UNK
  8. AZAMUN [Suspect]
     Active Substance: AZATHIOPRINE
     Dosage: 150 MG, QD
     Route: 065
     Dates: end: 20140826
  9. PREDNISOLON [Suspect]
     Active Substance: PREDNISOLONE
     Dosage: UNK
     Route: 065
  10. INFLIXIMAB [Suspect]
     Active Substance: INFLIXIMAB
     Dosage: UNK
     Route: 065
     Dates: start: 20171227
  11. AZAMUN [Suspect]
     Active Substance: AZATHIOPRINE
     Indication: INTERSTITIAL LUNG DISEASE
     Dosage: 75 MG, QD
     Route: 065
  12. PREDNISOLON [Suspect]
     Active Substance: PREDNISOLONE
     Dosage: 10 MG, QD
     Route: 065
  13. INFLIXIMAB [Suspect]
     Active Substance: INFLIXIMAB
     Dosage: UNK
     Route: 065
     Dates: start: 20171207
  14. SOLU-MEDROL [Suspect]
     Active Substance: METHYLPREDNISOLONE SODIUM SUCCINATE
     Indication: COLITIS ULCERATIVE
     Dosage: 60 MG, QD
     Route: 065
     Dates: start: 20131208
  15. AZAMUN [Suspect]
     Active Substance: AZATHIOPRINE
     Dosage: 200 MG, QD
     Route: 065
     Dates: start: 201404
  16. PREDNISOLON [Suspect]
     Active Substance: PREDNISOLONE
     Dosage: UNK
     Route: 065
     Dates: start: 201703
  17. MERCAPTOPURIN [Concomitant]
     Active Substance: MERCAPTOPURINE
     Dosage: 100 MG, QD
  18. MERCAPTOPURIN [Concomitant]
     Active Substance: MERCAPTOPURINE
     Dosage: 150 MG, QD

REACTIONS (4)
  - Chorioretinopathy [Unknown]
  - B-cell lymphoma [Recovered/Resolved with Sequelae]
  - Epstein-Barr virus infection [Unknown]
  - Liver function test increased [Recovered/Resolved]

NARRATIVE: CASE EVENT DATE: 201403
